FAERS Safety Report 9707675 (Version 2)
Quarter: 2014Q3

REPORT INFORMATION
  Report Type: Spontaneous
  Country: US (occurrence: US)
  Receive Date: 20131125
  Receipt Date: 20140905
  Transmission Date: 20150326
  Serious: Yes (Death, Hospitalization, Other)
  Sender: FDA-Public Use
  Company Number: US-009507513-1311USA009895

PATIENT
  Sex: Male
  Weight: 108.84 kg

DRUGS (1)
  1. JANUVIA [Suspect]
     Active Substance: SITAGLIPTIN PHOSPHATE
     Indication: TYPE 2 DIABETES MELLITUS
     Dosage: 100 MG, QD
     Route: 048
     Dates: start: 201004, end: 20120112

REACTIONS (9)
  - Hypothyroidism [Unknown]
  - Pancreaticoduodenectomy [Unknown]
  - Surgery [Unknown]
  - Hypertension [Unknown]
  - Aortic aneurysm [Unknown]
  - Surgery [Unknown]
  - Radiotherapy [Unknown]
  - Pancreatic carcinoma [Fatal]
  - Blood cholesterol increased [Unknown]

NARRATIVE: CASE EVENT DATE: 201201
